FAERS Safety Report 8619524-6 (Version None)
Quarter: 2012Q3

REPORT INFORMATION
  Report Type: 
  Country: None (occurrence: None)
  Receive Date: 20120824
  Receipt Date: 20120330
  Transmission Date: 20120928
  Serious: No
  Sender: FDA-Public Use
  Company Number: US-ASTRAZENECA-2012SE21719

PATIENT
  Age: 72 Year
  Sex: Male

DRUGS (3)
  1. SYMBICORT [Suspect]
     Dosage: 160/4.5 MCG, UNKNOWN
     Route: 055
  2. FLUTICASONE PROPIONATE [Concomitant]
  3. NEXIUM [Concomitant]

REACTIONS (1)
  - DRUG INTOLERANCE [None]
